FAERS Safety Report 14900807 (Version 1)
Quarter: 2018Q2

REPORT INFORMATION
  Report Type: Spontaneous
  Country: US (occurrence: US)
  Receive Date: 20180428
  Receipt Date: 20180428
  Transmission Date: 20180711
  Serious: Yes (Death)
  Sender: FDA-Public Use
  Company Number: None

PATIENT
  Age: 24 Year
  Sex: Female
  Weight: 51.7 kg

DRUGS (4)
  1. LEVETIRACETAM. [Concomitant]
     Active Substance: LEVETIRACETAM
     Dates: start: 20180402, end: 20180426
  2. ACYCLOVIR. [Concomitant]
     Active Substance: ACYCLOVIR
     Dates: start: 20180402, end: 20180426
  3. YESCARTA [Suspect]
     Active Substance: AXICABTAGENE CILOLEUCEL
     Indication: PRIMARY MEDIASTINAL LARGE B-CELL LYMPHOMA
     Dosage: ?          OTHER FREQUENCY:ONCE ON 04/02/18;?
     Route: 041
     Dates: start: 20180402, end: 20180402
  4. ONDANSETRON [Concomitant]
     Active Substance: ONDANSETRON
     Dates: start: 20180402, end: 20180426

REACTIONS (14)
  - Lung infiltration [None]
  - Pulmonary embolism [None]
  - Encephalopathy [None]
  - Septic shock [None]
  - Staphylococcal infection [None]
  - Cytokine release syndrome [None]
  - Ventricular fibrillation [None]
  - Toxicity to various agents [None]
  - Pulseless electrical activity [None]
  - Thrombocytopenia [None]
  - Supraventricular tachycardia [None]
  - Abdominal pain [None]
  - Hypotension [None]
  - Cardiac arrest [None]

NARRATIVE: CASE EVENT DATE: 20180427
